FAERS Safety Report 8451892-0 (Version None)
Quarter: 2012Q2

REPORT INFORMATION
  Report Type: 
  Country: None (occurrence: None)
  Receive Date: 20120620
  Receipt Date: 20120323
  Transmission Date: 20120825
  Serious: No
  Sender: FDA-Public Use
  Company Number: US-VERTEX PHARMACEUTICALS INC.-AE-2012-004194

PATIENT
  Sex: Female
  Weight: 83.536 kg

DRUGS (3)
  1. INCIVEK [Suspect]
     Indication: HEPATITIS C
     Route: 048
     Dates: start: 20120207
  2. COPEGUS [Concomitant]
     Indication: HEPATITIS C
     Route: 048
     Dates: start: 20120207
  3. PEGASYS [Concomitant]
     Indication: HEPATITIS C
     Dates: start: 20120207

REACTIONS (4)
  - CONFUSIONAL STATE [None]
  - IRRITABILITY [None]
  - DEPRESSION [None]
  - DRUG DOSE OMISSION [None]
